FAERS Safety Report 16734305 (Version 1)
Quarter: 2019Q3

REPORT INFORMATION
  Report Type: Report from Study
  Country: CA (occurrence: CA)
  Receive Date: 20190823
  Receipt Date: 20190823
  Transmission Date: 20191005
  Serious: Yes (Hospitalization, Other)
  Sender: FDA-Public Use
  Company Number: CA-BRISTOL-MYERS SQUIBB COMPANY-BMS-2019-053085

PATIENT
  Age: 64 Year
  Sex: Female

DRUGS (1)
  1. ABATACEPT [Suspect]
     Active Substance: ABATACEPT
     Indication: RHEUMATOID ARTHRITIS
     Dosage: 500 MILLIGRAM, Q4WK
     Route: 042
     Dates: start: 20150612

REACTIONS (6)
  - Hip fracture [Unknown]
  - Arthralgia [Unknown]
  - Fall [Unknown]
  - Nausea [Unknown]
  - Diarrhoea [Unknown]
  - Joint range of motion decreased [Unknown]

NARRATIVE: CASE EVENT DATE: 20190626
